FAERS Safety Report 7478391-7 (Version None)
Quarter: 2011Q2

REPORT INFORMATION
  Report Type: 
  Country: None (occurrence: None)
  Receive Date: 20110513
  Receipt Date: 20100726
  Transmission Date: 20111010
  Serious: No
  Sender: FDA-Public Use
  Company Number: US-PFIZER INC-2010093972

PATIENT
  Sex: Female

DRUGS (6)
  1. NAPROXEN (ALEVE) [Suspect]
     Indication: MYALGIA
  2. CELEBREX [Suspect]
     Indication: MYALGIA
  3. PREDNISONE [Suspect]
     Indication: MYALGIA
     Dosage: UNK
  4. CELEBREX [Suspect]
     Indication: ARTHRITIS
     Dosage: 200 MG, UNK
  5. PREDNISONE [Suspect]
     Indication: ARTHRITIS
  6. NAPROXEN (ALEVE) [Suspect]
     Indication: ARTHRITIS
     Dosage: UNK

REACTIONS (8)
  - DRUG INEFFECTIVE [None]
  - URTICARIA [None]
  - NAUSEA [None]
  - FATIGUE [None]
  - MALAISE [None]
  - INFLUENZA LIKE ILLNESS [None]
  - MUSCULOSKELETAL STIFFNESS [None]
  - NECK PAIN [None]
